FAERS Safety Report 25884343 (Version 1)
Quarter: 2025Q4

REPORT INFORMATION
  Report Type: Spontaneous
  Country: GB (occurrence: GB)
  Receive Date: 20251006
  Receipt Date: 20251006
  Transmission Date: 20260117
  Serious: Yes (Hospitalization, Other)
  Sender: MYLAN
  Company Number: None

PATIENT
  Age: 81 Year
  Sex: Female

DRUGS (56)
  1. CITALOPRAM [Suspect]
     Active Substance: CITALOPRAM
     Indication: Product used for unknown indication
     Dosage: 10 MILLIGRAM, QD (ONE TO BE TAKEN EACH DAY)
  2. CITALOPRAM [Suspect]
     Active Substance: CITALOPRAM
     Dosage: 10 MILLIGRAM, QD (ONE TO BE TAKEN EACH DAY)
     Route: 065
  3. CITALOPRAM [Suspect]
     Active Substance: CITALOPRAM
     Dosage: 10 MILLIGRAM, QD (ONE TO BE TAKEN EACH DAY)
     Route: 065
  4. CITALOPRAM [Suspect]
     Active Substance: CITALOPRAM
     Dosage: 10 MILLIGRAM, QD (ONE TO BE TAKEN EACH DAY)
  5. CALCIUM CARBONATE\SODIUM ALGINATE\SODIUM BICARBONATE [Concomitant]
     Active Substance: CALCIUM CARBONATE\SODIUM ALGINATE\SODIUM BICARBONATE
     Dosage: UNK (ACIDEX ADVANCE ORAL SUSPENSION PEPPERMINT 10 ML FOUR TIMES A DAY, AFTER MEALS AND BEFORE BED, ONLY WHEN REQUIRED.+NBSP)
  6. CALCIUM CARBONATE\SODIUM ALGINATE\SODIUM BICARBONATE [Concomitant]
     Active Substance: CALCIUM CARBONATE\SODIUM ALGINATE\SODIUM BICARBONATE
     Dosage: UNK (ACIDEX ADVANCE ORAL SUSPENSION PEPPERMINT 10 ML FOUR TIMES A DAY, AFTER MEALS AND BEFORE BED, ONLY WHEN REQUIRED.+NBSP)
     Route: 065
  7. CALCIUM CARBONATE\SODIUM ALGINATE\SODIUM BICARBONATE [Concomitant]
     Active Substance: CALCIUM CARBONATE\SODIUM ALGINATE\SODIUM BICARBONATE
     Dosage: UNK (ACIDEX ADVANCE ORAL SUSPENSION PEPPERMINT 10 ML FOUR TIMES A DAY, AFTER MEALS AND BEFORE BED, ONLY WHEN REQUIRED.+NBSP)
     Route: 065
  8. CALCIUM CARBONATE\SODIUM ALGINATE\SODIUM BICARBONATE [Concomitant]
     Active Substance: CALCIUM CARBONATE\SODIUM ALGINATE\SODIUM BICARBONATE
     Dosage: UNK (ACIDEX ADVANCE ORAL SUSPENSION PEPPERMINT 10 ML FOUR TIMES A DAY, AFTER MEALS AND BEFORE BED, ONLY WHEN REQUIRED.+NBSP)
  9. CHOLECALCIFEROL [Concomitant]
     Active Substance: CHOLECALCIFEROL
     Dosage: UNK
  10. CHOLECALCIFEROL [Concomitant]
     Active Substance: CHOLECALCIFEROL
     Dosage: UNK
     Route: 065
  11. CHOLECALCIFEROL [Concomitant]
     Active Substance: CHOLECALCIFEROL
     Dosage: UNK
     Route: 065
  12. CHOLECALCIFEROL [Concomitant]
     Active Substance: CHOLECALCIFEROL
     Dosage: UNK
  13. ACETAMINOPHEN [Concomitant]
     Active Substance: ACETAMINOPHEN
     Dosage: 2 DOSAGE FORM, PRN (TWO TO BE TAKEN EVERY 4 TO 6 HOURS WHEN NECESSARY)
  14. ACETAMINOPHEN [Concomitant]
     Active Substance: ACETAMINOPHEN
     Dosage: 2 DOSAGE FORM, PRN (TWO TO BE TAKEN EVERY 4 TO 6 HOURS WHEN NECESSARY)
     Route: 065
  15. ACETAMINOPHEN [Concomitant]
     Active Substance: ACETAMINOPHEN
     Dosage: 2 DOSAGE FORM, PRN (TWO TO BE TAKEN EVERY 4 TO 6 HOURS WHEN NECESSARY)
     Route: 065
  16. ACETAMINOPHEN [Concomitant]
     Active Substance: ACETAMINOPHEN
     Dosage: 2 DOSAGE FORM, PRN (TWO TO BE TAKEN EVERY 4 TO 6 HOURS WHEN NECESSARY)
  17. ATORVASTATIN [Concomitant]
     Active Substance: ATORVASTATIN
     Dosage: 20 MILLIGRAM, PM (ONE TO BE TAKEN EACH NIGHT)
  18. ATORVASTATIN [Concomitant]
     Active Substance: ATORVASTATIN
     Dosage: 20 MILLIGRAM, PM (ONE TO BE TAKEN EACH NIGHT)
     Route: 065
  19. ATORVASTATIN [Concomitant]
     Active Substance: ATORVASTATIN
     Dosage: 20 MILLIGRAM, PM (ONE TO BE TAKEN EACH NIGHT)
     Route: 065
  20. ATORVASTATIN [Concomitant]
     Active Substance: ATORVASTATIN
     Dosage: 20 MILLIGRAM, PM (ONE TO BE TAKEN EACH NIGHT)
  21. DERMOL [Concomitant]
     Active Substance: BENZALKONIUM CHLORIDE\CHLORHEXIDINE HYDROCHLORIDE\ISOPROPYL MYRISTATE\PARAFFIN
     Dosage: UNK (500 LOTION APPLY TO SKIN OR USE AS A SOAP SUBSTITUTE)
  22. DERMOL [Concomitant]
     Active Substance: BENZALKONIUM CHLORIDE\CHLORHEXIDINE HYDROCHLORIDE\ISOPROPYL MYRISTATE\PARAFFIN
     Dosage: UNK (500 LOTION APPLY TO SKIN OR USE AS A SOAP SUBSTITUTE)
     Route: 061
  23. DERMOL [Concomitant]
     Active Substance: BENZALKONIUM CHLORIDE\CHLORHEXIDINE HYDROCHLORIDE\ISOPROPYL MYRISTATE\PARAFFIN
     Dosage: UNK (500 LOTION APPLY TO SKIN OR USE AS A SOAP SUBSTITUTE)
     Route: 061
  24. DERMOL [Concomitant]
     Active Substance: BENZALKONIUM CHLORIDE\CHLORHEXIDINE HYDROCHLORIDE\ISOPROPYL MYRISTATE\PARAFFIN
     Dosage: UNK (500 LOTION APPLY TO SKIN OR USE AS A SOAP SUBSTITUTE)
  25. PROMETHAZINE HYDROCHLORIDE [Concomitant]
     Active Substance: PROMETHAZINE HYDROCHLORIDE
     Indication: Aggression
     Dosage: 10 MILLIGRAM (10 MG TABLETS TWO TO BE TAKEN FOR SEVERE AGGITATION AND AGRESSION UP TO TIWCE A DAY. LEAVE 6 HOURS IN BETWEEN DOSES)
  26. PROMETHAZINE HYDROCHLORIDE [Concomitant]
     Active Substance: PROMETHAZINE HYDROCHLORIDE
     Indication: Agitation
     Dosage: 10 MILLIGRAM (10 MG TABLETS TWO TO BE TAKEN FOR SEVERE AGGITATION AND AGRESSION UP TO TIWCE A DAY. LEAVE 6 HOURS IN BETWEEN DOSES)
     Route: 065
  27. PROMETHAZINE HYDROCHLORIDE [Concomitant]
     Active Substance: PROMETHAZINE HYDROCHLORIDE
     Dosage: 10 MILLIGRAM (10 MG TABLETS TWO TO BE TAKEN FOR SEVERE AGGITATION AND AGRESSION UP TO TIWCE A DAY. LEAVE 6 HOURS IN BETWEEN DOSES)
     Route: 065
  28. PROMETHAZINE HYDROCHLORIDE [Concomitant]
     Active Substance: PROMETHAZINE HYDROCHLORIDE
     Dosage: 10 MILLIGRAM (10 MG TABLETS TWO TO BE TAKEN FOR SEVERE AGGITATION AND AGRESSION UP TO TIWCE A DAY. LEAVE 6 HOURS IN BETWEEN DOSES)
  29. POLYETHYLENE GLYCOL 3350\POTASSIUM CHLORIDE\SODIUM BICARBONATE\SODIUM [Concomitant]
     Active Substance: POLYETHYLENE GLYCOL 3350\POTASSIUM CHLORIDE\SODIUM BICARBONATE\SODIUM CHLORIDE
     Dosage: 1 DOSAGE FORM (LEMON AND LIME FLAVOUR ORAL POWDER SACHETS DISSOLVE CONTENTS OF ONE SACHET IN HALF A GLASS (125 ML) OF WATER AND TAKE TWICE A DAY IF NEEDED)
  30. POLYETHYLENE GLYCOL 3350\POTASSIUM CHLORIDE\SODIUM BICARBONATE\SODIUM [Concomitant]
     Active Substance: POLYETHYLENE GLYCOL 3350\POTASSIUM CHLORIDE\SODIUM BICARBONATE\SODIUM CHLORIDE
     Dosage: 1 DOSAGE FORM (LEMON AND LIME FLAVOUR ORAL POWDER SACHETS DISSOLVE CONTENTS OF ONE SACHET IN HALF A GLASS (125 ML) OF WATER AND TAKE TWICE A DAY IF NEEDED)
     Route: 048
  31. POLYETHYLENE GLYCOL 3350\POTASSIUM CHLORIDE\SODIUM BICARBONATE\SODIUM [Concomitant]
     Active Substance: POLYETHYLENE GLYCOL 3350\POTASSIUM CHLORIDE\SODIUM BICARBONATE\SODIUM CHLORIDE
     Dosage: 1 DOSAGE FORM (LEMON AND LIME FLAVOUR ORAL POWDER SACHETS DISSOLVE CONTENTS OF ONE SACHET IN HALF A GLASS (125 ML) OF WATER AND TAKE TWICE A DAY IF NEEDED)
     Route: 048
  32. POLYETHYLENE GLYCOL 3350\POTASSIUM CHLORIDE\SODIUM BICARBONATE\SODIUM [Concomitant]
     Active Substance: POLYETHYLENE GLYCOL 3350\POTASSIUM CHLORIDE\SODIUM BICARBONATE\SODIUM CHLORIDE
     Dosage: 1 DOSAGE FORM (LEMON AND LIME FLAVOUR ORAL POWDER SACHETS DISSOLVE CONTENTS OF ONE SACHET IN HALF A GLASS (125 ML) OF WATER AND TAKE TWICE A DAY IF NEEDED)
  33. SENNA [Concomitant]
     Active Substance: SENNOSIDES
     Indication: Constipation
     Dosage: 7.5 MILLIGRAM (SENNA 7.5 MG TABLETS TWO TO BE TAKEN AT NIGHT IF NEEDED FOR CONSTIPATION)
  34. SENNA [Concomitant]
     Active Substance: SENNOSIDES
     Dosage: 7.5 MILLIGRAM (SENNA 7.5 MG TABLETS TWO TO BE TAKEN AT NIGHT IF NEEDED FOR CONSTIPATION)
     Route: 065
  35. SENNA [Concomitant]
     Active Substance: SENNOSIDES
     Dosage: 7.5 MILLIGRAM (SENNA 7.5 MG TABLETS TWO TO BE TAKEN AT NIGHT IF NEEDED FOR CONSTIPATION)
     Route: 065
  36. SENNA [Concomitant]
     Active Substance: SENNOSIDES
     Dosage: 7.5 MILLIGRAM (SENNA 7.5 MG TABLETS TWO TO BE TAKEN AT NIGHT IF NEEDED FOR CONSTIPATION)
  37. PROMAZINE [Concomitant]
     Active Substance: PROMAZINE
     Dosage: 50 MILLIGRAM, QID (ONE TO BE TAKEN FOUR TIMES A DAY)
  38. PROMAZINE [Concomitant]
     Active Substance: PROMAZINE
     Dosage: 50 MILLIGRAM, QID (ONE TO BE TAKEN FOUR TIMES A DAY)
     Route: 065
  39. PROMAZINE [Concomitant]
     Active Substance: PROMAZINE
     Dosage: 50 MILLIGRAM, QID (ONE TO BE TAKEN FOUR TIMES A DAY)
     Route: 065
  40. PROMAZINE [Concomitant]
     Active Substance: PROMAZINE
     Dosage: 50 MILLIGRAM, QID (ONE TO BE TAKEN FOUR TIMES A DAY)
  41. OMEPRAZOLE [Concomitant]
     Active Substance: OMEPRAZOLE
     Dosage: 20 MILLIGRAM, BID (20 MG GASTRO-RESISTANT CAPSULES ONE TO BE TAKEN TWICE A DAY)
  42. OMEPRAZOLE [Concomitant]
     Active Substance: OMEPRAZOLE
     Dosage: 20 MILLIGRAM, BID (20 MG GASTRO-RESISTANT CAPSULES ONE TO BE TAKEN TWICE A DAY)
     Route: 065
  43. OMEPRAZOLE [Concomitant]
     Active Substance: OMEPRAZOLE
     Dosage: 20 MILLIGRAM, BID (20 MG GASTRO-RESISTANT CAPSULES ONE TO BE TAKEN TWICE A DAY)
     Route: 065
  44. OMEPRAZOLE [Concomitant]
     Active Substance: OMEPRAZOLE
     Dosage: 20 MILLIGRAM, BID (20 MG GASTRO-RESISTANT CAPSULES ONE TO BE TAKEN TWICE A DAY)
  45. FERROUS FUMARATE [Concomitant]
     Active Substance: FERROUS FUMARATE
     Dosage: 1 DOSAGE FORM, AM (305 MG CAPSULES ONE TO BE TAKEN EACH DAY AT LUNCHTIME)
  46. FERROUS FUMARATE [Concomitant]
     Active Substance: FERROUS FUMARATE
     Dosage: 1 DOSAGE FORM, AM (305 MG CAPSULES ONE TO BE TAKEN EACH DAY AT LUNCHTIME)
     Route: 065
  47. FERROUS FUMARATE [Concomitant]
     Active Substance: FERROUS FUMARATE
     Dosage: 1 DOSAGE FORM, AM (305 MG CAPSULES ONE TO BE TAKEN EACH DAY AT LUNCHTIME)
     Route: 065
  48. FERROUS FUMARATE [Concomitant]
     Active Substance: FERROUS FUMARATE
     Dosage: 1 DOSAGE FORM, AM (305 MG CAPSULES ONE TO BE TAKEN EACH DAY AT LUNCHTIME)
  49. COAL TAR [Concomitant]
     Active Substance: COAL TAR
     Dosage: UNK (4% SHAMPOO AS DIRECTED.+NBSP)
  50. COAL TAR [Concomitant]
     Active Substance: COAL TAR
     Dosage: UNK (4% SHAMPOO AS DIRECTED.+NBSP)
     Route: 065
  51. COAL TAR [Concomitant]
     Active Substance: COAL TAR
     Dosage: UNK (4% SHAMPOO AS DIRECTED.+NBSP)
     Route: 065
  52. COAL TAR [Concomitant]
     Active Substance: COAL TAR
     Dosage: UNK (4% SHAMPOO AS DIRECTED.+NBSP)
  53. VALPROIC ACID [Concomitant]
     Active Substance: VALPROIC ACID
     Dosage: 250 MILLIGRAM, TID  (ONE TO BE TAKEN THREE TIMES A DAY)
  54. VALPROIC ACID [Concomitant]
     Active Substance: VALPROIC ACID
     Dosage: 250 MILLIGRAM, TID  (ONE TO BE TAKEN THREE TIMES A DAY)
     Route: 065
  55. VALPROIC ACID [Concomitant]
     Active Substance: VALPROIC ACID
     Dosage: 250 MILLIGRAM, TID  (ONE TO BE TAKEN THREE TIMES A DAY)
     Route: 065
  56. VALPROIC ACID [Concomitant]
     Active Substance: VALPROIC ACID
     Dosage: 250 MILLIGRAM, TID  (ONE TO BE TAKEN THREE TIMES A DAY)

REACTIONS (5)
  - Gastrointestinal haemorrhage [Unknown]
  - Abdominal pain upper [Unknown]
  - Faeces discoloured [Unknown]
  - Discoloured vomit [Unknown]
  - Abdominal pain [Unknown]
